FAERS Safety Report 7267585-1 (Version None)
Quarter: 2011Q1

REPORT INFORMATION
  Report Type: 
  Country: None (occurrence: None)
  Receive Date: 20110201
  Receipt Date: 20110113
  Transmission Date: 20110831
  Serious: Yes (Hospitalization)
  Sender: FDA-Public Use
  Company Number: JP-SANOFI-AVENTIS-2011SA005763

PATIENT
  Sex: Female

DRUGS (1)
  1. DESMOPRESSIN ACETATE [Suspect]
     Indication: HORMONE REPLACEMENT THERAPY
     Route: 065
     Dates: start: 20050101

REACTIONS (4)
  - HYPONATRAEMIA [None]
  - BODY TEMPERATURE FLUCTUATION [None]
  - GRAND MAL CONVULSION [None]
  - OSMOTIC DEMYELINATION SYNDROME [None]
